FAERS Safety Report 5357408-X (Version None)
Quarter: 2007Q2

REPORT INFORMATION
  Report Type: 
  Country: None (occurrence: None)
  Receive Date: 20070612
  Receipt Date: 20070612
  Transmission Date: 20071010
  Serious: Yes (Other)
  Sender: FDA-Public Use
  Company Number: None

PATIENT
  Age: 69 Year
  Sex: Male
  Weight: 72.5755 kg

DRUGS (1)
  1. DORYX [Suspect]
     Indication: ACNE
     Dosage: 100 MG DAILY PO
     Route: 048
     Dates: start: 20070110, end: 20070501

REACTIONS (4)
  - DRUG ERUPTION [None]
  - PHARMACEUTICAL PRODUCT COMPLAINT [None]
  - RASH GENERALISED [None]
  - RASH MACULAR [None]
